FAERS Safety Report 19750450 (Version 1)
Quarter: 2021Q3

REPORT INFORMATION
  Report Type: Spontaneous
  Country: US (occurrence: US)
  Receive Date: 20210826
  Receipt Date: 20210826
  Transmission Date: 20211014
  Serious: No
  Sender: FDA-Public Use
  Company Number: None

PATIENT
  Age: 53 Year
  Sex: Female
  Weight: 63 kg

DRUGS (9)
  1. SERTRALINE [Concomitant]
     Active Substance: SERTRALINE HYDROCHLORIDE
  2. ALIGN [Concomitant]
     Active Substance: BIFIDOBACTERIUM LONGUM SUBSP. INFANTIS
  3. FLUTICASONE. [Concomitant]
     Active Substance: FLUTICASONE
  4. QUERCETIN/BROMELAIN [Concomitant]
  5. NAC [Concomitant]
  6. FEXOFENADINE [Concomitant]
     Active Substance: FEXOFENADINE HYDROCHLORIDE
  7. HYDROCODONE BITARTRATE AND ACETAMINOPHEN [Concomitant]
     Active Substance: ACETAMINOPHEN\HYDROCODONE BITARTRATE
  8. PREGABALIN 50 MG [Suspect]
     Active Substance: PREGABALIN
     Indication: MYALGIA
     Dosage: ?          QUANTITY:1 CAPSULE(S);?
     Route: 048
     Dates: start: 20210722, end: 20210826
  9. VITAMIN B?1 [Concomitant]
     Active Substance: THIAMINE HYDROCHLORIDE

REACTIONS (8)
  - Hyperaesthesia teeth [None]
  - Paranasal sinus hyposecretion [None]
  - Memory impairment [None]
  - Swelling face [None]
  - Mental impairment [None]
  - Peripheral swelling [None]
  - Somnolence [None]
  - Toothache [None]

NARRATIVE: CASE EVENT DATE: 20210820
